FAERS Safety Report 7131579-7 (Version None)
Quarter: 2010Q4

REPORT INFORMATION
  Report Type: 
  Country: None (occurrence: None)
  Receive Date: 20101201
  Receipt Date: 20101116
  Transmission Date: 20110411
  Serious: Yes (Other)
  Sender: FDA-Public Use
  Company Number: AU-B.I. PHARMACEUTICALS,INC./RIDGEFIELD-2010-BP-13443YA

PATIENT
  Age: 76 Year
  Sex: Male

DRUGS (3)
  1. FLOMAXTRA XL (TAMSULOSIN) ORODISPERSABLE [Suspect]
     Dosage: 400 UG, UID/QD
     Dates: start: 20101005
  2. PARACETAMOL [Concomitant]
  3. FISH OIL [Concomitant]

REACTIONS (2)
  - CONSTIPATION [None]
  - MYOCARDIAL INFARCTION [None]
